FAERS Safety Report 8716218 (Version 3)
Quarter: 2013Q2

REPORT INFORMATION
  Report Type: Report from Study
  Country: JP (occurrence: JP)
  Receive Date: 20120809
  Receipt Date: 20130617
  Transmission Date: 20140414
  Serious: Yes (Other)
  Sender: FDA-Public Use
  Company Number: JP-009507513-2012SP036766

PATIENT
  Age: 52 Year
  Sex: Male
  Weight: 70 kg

DRUGS (12)
  1. PEGINTRON [Suspect]
     Indication: CHRONIC HEPATITIS C
     Dosage: 1.5 MICROGRAM PER KILOGRAM, QW
     Route: 058
     Dates: start: 20120417, end: 20120925
  2. REBETOL [Suspect]
     Indication: CHRONIC HEPATITIS C
     Dosage: 800 MG, QD
     Route: 048
     Dates: start: 20120417, end: 20120521
  3. REBETOL [Suspect]
     Dosage: 600 MG, QD
     Route: 048
     Dates: start: 20120522, end: 20120611
  4. REBETOL [Suspect]
     Dosage: 400 MG, QD
     Route: 048
     Dates: start: 20120612, end: 20120709
  5. REBETOL [Suspect]
     Dosage: 600 MG, QD
     Route: 048
     Dates: start: 20120710, end: 20120723
  6. REBETOL [Suspect]
     Dosage: 800 MG, QD
     Route: 048
     Dates: start: 20120724, end: 20121001
  7. TELAVIC [Suspect]
     Indication: CHRONIC HEPATITIS C
     Dosage: 2250 MG, QD
     Route: 048
     Dates: start: 20120417, end: 20120528
  8. TELAVIC [Suspect]
     Dosage: 1.5 G, QD
     Route: 048
     Dates: start: 20120529, end: 20120619
  9. URSO [Concomitant]
     Indication: CHRONIC HEPATITIS C
     Dosage: 600 MG, QD,POR
     Route: 048
     Dates: end: 20120430
  10. GLYCYRON [Concomitant]
     Indication: CHRONIC HEPATITIS C
     Dosage: 6 DF, QD
     Route: 048
     Dates: end: 20120430
  11. ALESION [Concomitant]
     Indication: URTICARIA CHRONIC
     Dosage: 20 MG, QD, POR
     Route: 048
  12. ADALAT CR [Concomitant]
     Indication: HYPERTENSION
     Dosage: 40 MG, QD, POR
     Route: 048

REACTIONS (1)
  - Rash [Recovered/Resolved]
